FAERS Safety Report 5755084-5 (Version None)
Quarter: 2008Q2

REPORT INFORMATION
  Report Type: 
  Country: None (occurrence: None)
  Receive Date: 20080528
  Receipt Date: 20080516
  Transmission Date: 20081010
  Serious: Yes (Hospitalization)
  Sender: FDA-Public Use
  Company Number: 20085154

PATIENT
  Sex: Male

DRUGS (1)
  1. LIORESAL [Suspect]
     Indication: MUSCLE SPASTICITY
     Dosage: 720 MCG, DAILY, INTRATHECAL
     Route: 037

REACTIONS (3)
  - ILEUS [None]
  - MEDICAL DEVICE COMPLICATION [None]
  - MOBILITY DECREASED [None]
